FAERS Safety Report 8120723-0 (Version None)
Quarter: 2012Q1

REPORT INFORMATION
  Report Type: 
  Country: None (occurrence: None)
  Receive Date: 20120207
  Receipt Date: 20120201
  Transmission Date: 20120608
  Serious: Yes (Hospitalization)
  Sender: FDA-Public Use
  Company Number: US-BAYER-2011-029329

PATIENT
  Sex: Female
  Weight: 113.38 kg

DRUGS (3)
  1. PAXIL [Concomitant]
  2. YASMIN [Suspect]
     Dosage: UNK
     Dates: start: 20070601, end: 20090201
  3. LISINOPRIL [Concomitant]

REACTIONS (9)
  - CHOLECYSTITIS [None]
  - ANXIETY [None]
  - PSYCHOLOGICAL TRAUMA [None]
  - CHOLELITHIASIS [None]
  - INJURY [None]
  - ABDOMINAL PAIN UPPER [None]
  - FEAR OF DISEASE [None]
  - GENERAL PHYSICAL HEALTH DETERIORATION [None]
  - EMOTIONAL DISTRESS [None]
